FAERS Safety Report 15256355 (Version 1)
Quarter: 2018Q3

REPORT INFORMATION
  Report Type: Spontaneous
  Country: US (occurrence: US)
  Receive Date: 20180718
  Receipt Date: 20180718
  Transmission Date: 20181010
  Serious: Yes (Death)
  Sender: FDA-Public Use
  Company Number: None

PATIENT
  Age: 12 Year
  Sex: Male

DRUGS (5)
  1. ALBUTEROL. [Concomitant]
     Active Substance: ALBUTEROL
  2. PULICORT [Concomitant]
  3. GENTAMICIN. [Suspect]
     Active Substance: GENTAMICIN
     Indication: CYSTIC FIBROSIS
     Route: 055
     Dates: start: 20151009, end: 20180716
  4. TRACLEER [Concomitant]
     Active Substance: BOSENTAN
  5. ZYRTEC [Concomitant]
     Active Substance: CETIRIZINE HYDROCHLORIDE

REACTIONS (1)
  - Death [None]

NARRATIVE: CASE EVENT DATE: 20180716
